FAERS Safety Report 6112139-3 (Version None)
Quarter: 2009Q1

REPORT INFORMATION
  Report Type: 
  Country: None (occurrence: None)
  Receive Date: 20090310
  Receipt Date: 20090223
  Transmission Date: 20090719
  Serious: Yes (Hospitalization)
  Sender: FDA-Public Use
  Company Number: 231607K09USA

PATIENT
  Age: 36 Year
  Sex: Male

DRUGS (7)
  1. REBIF [Suspect]
     Indication: MULTIPLE SCLEROSIS
     Dosage: 44 MCG, 3 IN 1 WEEKS, SUBCUTANEOUS
     Route: 058
     Dates: start: 20080403
  2. ZEGERID (OMEPRAZOLE) [Concomitant]
  3. CITALOPRAM HYDROBROMIDE [Concomitant]
  4. SIMVASTATIN [Concomitant]
  5. TIZANIDINE HCL [Concomitant]
  6. SYNTHROID [Concomitant]
  7. GABAPENTIN [Concomitant]

REACTIONS (3)
  - FALL [None]
  - MEDICAL DEVICE COMPLICATION [None]
  - THROMBOSIS [None]
